FAERS Safety Report 10231652 (Version 1)
Quarter: 2014Q2

REPORT INFORMATION
  Report Type: Spontaneous
  Country: US (occurrence: US)
  Receive Date: 20140611
  Receipt Date: 20140611
  Transmission Date: 20141212
  Serious: No
  Sender: FDA-Public Use
  Company Number: US-TEVA-483947USA

PATIENT
  Sex: Female

DRUGS (1)
  1. QNASL [Suspect]
     Route: 045

REACTIONS (1)
  - Fungal infection [Not Recovered/Not Resolved]
